FAERS Safety Report 23319831 (Version 1)
Quarter: 2023Q4

REPORT INFORMATION
  Report Type: Spontaneous
  Country: US (occurrence: US)
  Receive Date: 20231220
  Receipt Date: 20231220
  Transmission Date: 20240109
  Serious: No
  Sender: FDA-Public Use
  Company Number: US-RICONPHARMA, LLC-2023RIC000038

PATIENT

DRUGS (5)
  1. SCOPOLAMINE [Suspect]
     Active Substance: SCOPOLAMINE
     Indication: Dizziness
     Dosage: 1 MG/ 3DAY
     Route: 062
  2. LOSARTAN [Concomitant]
     Active Substance: LOSARTAN
     Indication: Blood pressure management
     Dosage: 25 MILLIGRAM
     Route: 065
  3. HYDROCHLOROTHIAZIDE [Concomitant]
     Active Substance: HYDROCHLOROTHIAZIDE
     Indication: Blood pressure management
     Dosage: 12.5 MILLIGRAM,CP DAILY
     Route: 065
  4. FAMOTIDINE [Concomitant]
     Active Substance: FAMOTIDINE
     Indication: Prophylaxis
     Dosage: 20 MILLIGRAM
     Route: 065
  5. Aporvastapin Lipitor [Concomitant]
     Indication: Blood cholesterol increased
     Dosage: 10 MILLIGRAM, QD
     Route: 065

REACTIONS (3)
  - Nausea [Recovering/Resolving]
  - Drug ineffective for unapproved indication [Unknown]
  - Product adhesion issue [Unknown]
